FAERS Safety Report 9796509 (Version 2)
Quarter: 2014Q1

REPORT INFORMATION
  Report Type: Spontaneous
  Country: US (occurrence: US)
  Receive Date: 20140103
  Receipt Date: 20140129
  Transmission Date: 20141002
  Serious: Yes (Other)
  Sender: FDA-Public Use
  Company Number: US-PERRIGO-13US013244

PATIENT
  Sex: Male

DRUGS (1)
  1. NIGHTTIME CHERRY 6 HOUR 459 [Suspect]
     Indication: PRODUCT USED FOR UNKNOWN INDICATION
     Dosage: UNK
     Route: 048
     Dates: start: 201312

REACTIONS (2)
  - Dyspnoea [Unknown]
  - Vomiting [Unknown]
